FAERS Safety Report 17514300 (Version 1)
Quarter: 2020Q1

REPORT INFORMATION
  Report Type: Spontaneous
  Country: JP (occurrence: JP)
  Receive Date: 20200307
  Receipt Date: 20200307
  Transmission Date: 20200409
  Serious: Yes (Other)
  Sender: FDA-Public Use
  Company Number: JP-ROCHE-2562844

PATIENT
  Age: 7 Decade
  Sex: Female

DRUGS (3)
  1. PREDONINE [Suspect]
     Active Substance: PREDNISOLONE
     Indication: PRODUCT USED FOR UNKNOWN INDICATION
     Route: 042
  2. KEVZARA [Suspect]
     Active Substance: SARILUMAB
     Indication: PRODUCT USED FOR UNKNOWN INDICATION
     Route: 065
  3. BONVIVA [Suspect]
     Active Substance: IBANDRONATE SODIUM
     Indication: OSTEOPOROSIS
     Route: 042

REACTIONS (1)
  - Lumbar vertebral fracture [Not Recovered/Not Resolved]
